FAERS Safety Report 8193544-0 (Version None)
Quarter: 2012Q1

REPORT INFORMATION
  Report Type: 
  Country: None (occurrence: None)
  Receive Date: 20120308
  Receipt Date: 20120301
  Transmission Date: 20120608
  Serious: Yes (Other)
  Sender: FDA-Public Use
  Company Number: US-ROCHE-1045157

PATIENT
  Sex: Female
  Weight: 36.411 kg

DRUGS (8)
  1. AVASTIN [Suspect]
     Indication: BILE DUCT CANCER
     Route: 042
     Dates: start: 20120207, end: 20120228
  2. XELODA [Suspect]
     Indication: BILE DUCT CANCER
     Route: 048
     Dates: start: 20120207, end: 20120221
  3. OXYCODONE HCL [Concomitant]
  4. PROCHLORPERAZINE [Concomitant]
  5. METHADON HCL TAB [Concomitant]
  6. DEXAMETHASONE [Concomitant]
  7. GEMCITABINE HYDROCHLORIDE [Suspect]
     Indication: BILE DUCT CANCER
     Route: 042
     Dates: start: 20120207, end: 20120228
  8. OMEPRAZOLE [Concomitant]

REACTIONS (1)
  - CEREBROVASCULAR ACCIDENT [None]
